FAERS Safety Report 7779887-0 (Version None)
Quarter: 2011Q3

REPORT INFORMATION
  Report Type: 
  Country: None (occurrence: None)
  Receive Date: 20110927
  Receipt Date: 20110228
  Transmission Date: 20111222
  Serious: No
  Sender: FDA-Public Use
  Company Number: US-ASTRAZENECA-2011SE11235

PATIENT
  Age: 58 Year
  Sex: Male
  Weight: 74.8 kg

DRUGS (5)
  1. LISINOPRIL AND HYDROCHLOROTHIAZIDE [Concomitant]
     Indication: BLOOD PRESSURE MANAGEMENT
  2. SEROQUEL [Suspect]
     Indication: BIPOLAR DISORDER
     Route: 048
  3. SEROQUEL [Suspect]
     Route: 048
  4. VICADIN [Concomitant]
     Indication: ARTHRALGIA
  5. KLONOPIN [Concomitant]
     Indication: BIPOLAR DISORDER

REACTIONS (1)
  - FEELING ABNORMAL [None]
